FAERS Safety Report 25532471 (Version 2)
Quarter: 2025Q3

REPORT INFORMATION
  Report Type: Report from Study
  Country: GB (occurrence: GB)
  Receive Date: 20250709
  Receipt Date: 20250924
  Transmission Date: 20251021
  Serious: Yes (Other)
  Sender: SANDOZ
  Company Number: GB-SANDOZ-SDZ2024GB089559

PATIENT
  Sex: Male

DRUGS (1)
  1. OMNITROPE [Suspect]
     Active Substance: SOMATROPIN
     Indication: Growth hormone deficiency
     Route: 058

REACTIONS (7)
  - Brain operation [Unknown]
  - Illness [Unknown]
  - Fatigue [Unknown]
  - Intentional dose omission [Unknown]
  - Device use issue [Unknown]
  - Drug delivery system issue [Unknown]
  - Circumstance or information capable of leading to medication error [Unknown]
